FAERS Safety Report 11277272 (Version 1)
Quarter: 2015Q3

REPORT INFORMATION
  Report Type: Spontaneous
  Country: AU (occurrence: AU)
  Receive Date: 20150716
  Receipt Date: 20150716
  Transmission Date: 20151125
  Serious: Yes (Death)
  Sender: FDA-Public Use
  Company Number: AU-BAXTER-2013BAX022409

PATIENT
  Age: 70 Year
  Sex: Male

DRUGS (1)
  1. SYNTHAMIN [Suspect]
     Active Substance: AMINO ACIDS
     Indication: PARENTERAL NUTRITION
     Route: 042
     Dates: start: 20130528, end: 20130528

REACTIONS (1)
  - Death [Fatal]

NARRATIVE: CASE EVENT DATE: 20130528
